FAERS Safety Report 7485015-1 (Version None)
Quarter: 2011Q2

REPORT INFORMATION
  Report Type: 
  Country: None (occurrence: None)
  Receive Date: 20110517
  Receipt Date: 20101011
  Transmission Date: 20111010
  Serious: No
  Sender: FDA-Public Use
  Company Number: US-BAYER-201022657BCC

PATIENT
  Age: 74 Year
  Sex: Female
  Weight: 59.41 kg

DRUGS (9)
  1. FISH OIL [Concomitant]
  2. CHONDROITIN W/GLUCOSAMINE [Concomitant]
  3. VITAMIN D [Concomitant]
  4. CENTRUM SILVER [Concomitant]
  5. ASPIRIN [Concomitant]
     Dosage: COUNT BOTTLE 300S
  6. CALCIUM [CALCIUM] [Concomitant]
  7. PRELIEF [Concomitant]
  8. LISINOPRIL [Concomitant]
  9. ALEVE [Suspect]
     Indication: ARTHRALGIA
     Dosage: 440 MG, QID

REACTIONS (1)
  - ARTHRALGIA [None]
